FAERS Safety Report 6756860-2 (Version None)
Quarter: 2010Q2

REPORT INFORMATION
  Report Type: 
  Country: None (occurrence: None)
  Receive Date: 20100524
  Receipt Date: 20100312
  Transmission Date: 20101027
  Serious: No
  Sender: FDA-Public Use
  Company Number: 006932

PATIENT
  Sex: Male

DRUGS (1)
  1. CIMZIA [Suspect]
     Indication: CROHN'S DISEASE
     Dosage: (400 MG Q 25 DAYS SUBCUTANEOUS)
     Route: 058
     Dates: start: 20090106

REACTIONS (4)
  - ABDOMINAL WALL DISORDER [None]
  - ACNE [None]
  - ARTHRALGIA [None]
  - FATIGUE [None]
